FAERS Safety Report 6360199-7 (Version None)
Quarter: 2009Q3

REPORT INFORMATION
  Report Type: 
  Country: None (occurrence: None)
  Receive Date: 20090917
  Receipt Date: 20090909
  Transmission Date: 20100115
  Serious: Yes (Hospitalization, Other)
  Sender: FDA-Public Use
  Company Number: FR-GILEAD-2009-0024156

PATIENT
  Age: 56 Year
  Sex: Male

DRUGS (4)
  1. TRUVADA [Suspect]
     Indication: HIV INFECTION
     Route: 048
     Dates: start: 20090310, end: 20090630
  2. BACTRIM [Suspect]
     Route: 048
     Dates: start: 19960905, end: 20090401
  3. KALETRA [Concomitant]
     Route: 048
     Dates: start: 20090310
  4. ZIAGEN [Concomitant]
     Route: 048
     Dates: start: 20090310

REACTIONS (5)
  - ANAEMIA [None]
  - GLYCOSURIA [None]
  - PNEUMOCYSTIS JIROVECI PNEUMONIA [None]
  - PULMONARY EMBOLISM [None]
  - RENAL FAILURE [None]
